FAERS Safety Report 6347173-1 (Version None)
Quarter: 2009Q3

REPORT INFORMATION
  Report Type: 
  Country: None (occurrence: None)
  Receive Date: 20090910
  Receipt Date: 20090901
  Transmission Date: 20100115
  Serious: Yes (Hospitalization, Other)
  Sender: FDA-Public Use
  Company Number: PHHY2009TN37183

PATIENT
  Age: 27 Year
  Sex: Male

DRUGS (3)
  1. CLOZAPINE [Suspect]
     Indication: SCHIZOPHRENIA
     Dosage: 450 MG/DAY
  2. CLOZAPINE [Suspect]
     Dosage: 600 MG/DAY
  3. SULPIRIDE [Concomitant]
     Dosage: 600 MG/DAY

REACTIONS (3)
  - ABNORMAL BEHAVIOUR [None]
  - AGITATION [None]
  - HALLUCINATION [None]
